FAERS Safety Report 9840341 (Version 2)
Quarter: 2016Q3

REPORT INFORMATION
  Report Type: Spontaneous
  Country: IT (occurrence: IT)
  Receive Date: 20140124
  Receipt Date: 20160718
  Transmission Date: 20161109
  Serious: Yes (Other)
  Sender: FDA-Public Use
  Company Number: IT-ABBVIE-14P-083-1191651-00

PATIENT
  Age: 59 Year
  Sex: Male

DRUGS (6)
  1. HALOTHANE. [Suspect]
     Active Substance: HALOTHANE
     Indication: OCCUPATIONAL EXPOSURE TO PRODUCT
     Route: 065
     Dates: start: 19830101, end: 19900101
  2. SEVOFLURANE. [Suspect]
     Active Substance: SEVOFLURANE
     Indication: OCCUPATIONAL EXPOSURE TO PRODUCT
     Route: 065
     Dates: start: 19900101
  3. OTHER HALOGENATED ALIPHATIC HYDROCARBONS [Suspect]
     Active Substance: UNSPECIFIED INGREDIENT
     Indication: PRODUCT USED FOR UNKNOWN INDICATION
     Route: 065
  4. ENFLURANE. [Suspect]
     Active Substance: ENFLURANE
     Indication: OCCUPATIONAL EXPOSURE TO PRODUCT
     Route: 065
     Dates: start: 19830101, end: 19900101
  5. ISOFLURANE. [Suspect]
     Active Substance: ISOFLURANE
     Indication: OCCUPATIONAL EXPOSURE TO PRODUCT
     Route: 065
     Dates: start: 19830101, end: 19900101
  6. NITROUS OXIDE. [Suspect]
     Active Substance: NITROUS OXIDE
     Indication: OCCUPATIONAL EXPOSURE TO PRODUCT
     Route: 065
     Dates: start: 19830101, end: 20050101

REACTIONS (2)
  - Parkinson^s disease [Not Recovered/Not Resolved]
  - Occupational exposure to product [Unknown]

NARRATIVE: CASE EVENT DATE: 20050101
